FAERS Safety Report 16095464 (Version 1)
Quarter: 2019Q1

REPORT INFORMATION
  Report Type: Spontaneous
  Country: JP (occurrence: JP)
  Receive Date: 20190320
  Receipt Date: 20190320
  Transmission Date: 20190418
  Serious: Yes (Hospitalization, Disabling)
  Sender: FDA-Public Use
  Company Number: JP-AMGEN-JPNSP2019014278

PATIENT
  Age: 56 Year
  Sex: Male
  Weight: 55 kg

DRUGS (12)
  1. BAYASPIRIN [Concomitant]
     Active Substance: ASPIRIN
     Dosage: 100 MILLIGRAM, UNK
     Route: 048
  2. PROGRAF [Suspect]
     Active Substance: TACROLIMUS\TACROLIMUS ANHYDROUS
     Indication: PLASMA CELL MYELOMA
     Dosage: 1 MILLIGRAM
     Route: 048
  3. RANMARK [Suspect]
     Active Substance: DENOSUMAB
     Indication: PLASMA CELL MYELOMA
     Dosage: 120 MILLIGRAM, QMO
     Route: 065
     Dates: start: 20120830
  4. TAKEPRON [Concomitant]
     Active Substance: LANSOPRAZOLE
     Dosage: 1.5 MILLIGRAM, UNK
     Route: 048
  5. METGLUCO [Concomitant]
     Active Substance: METFORMIN HYDROCHLORIDE
     Dosage: 1000 MG
     Route: 048
  6. TACROLIMUS. [Suspect]
     Active Substance: TACROLIMUS
     Indication: PRODUCT USED FOR UNKNOWN INDICATION
     Dosage: 1 MILLIGRAM, QD
     Route: 065
  7. ZOLEDRONIC ACID [Suspect]
     Active Substance: ZOLEDRONIC ACID
     Indication: PRODUCT USED FOR UNKNOWN INDICATION
     Dosage: 4 MILLIGRAM, QMO
     Route: 042
  8. ASPARA K [Concomitant]
     Active Substance: POTASSIUM ASPARTATE
     Dosage: 450 MG
     Route: 048
  9. ITRIZOLE [Concomitant]
     Active Substance: ITRACONAZOLE
     Dosage: 10MG/20ML
     Route: 048
  10. EQUA [Concomitant]
     Active Substance: VILDAGLIPTIN
     Dosage: 100 MG
     Route: 048
  11. ZOMETA [Suspect]
     Active Substance: ZOLEDRONIC ACID
     Indication: PLASMA CELL MYELOMA
     Dosage: 4 MG, ONCE EVERY 1 MO, 5 TIMES
     Route: 042
     Dates: start: 20120321, end: 20120726
  12. MIYA-BM [Concomitant]
     Active Substance: CLOSTRIDIUM BUTYRICUM SPORES STRAIN M-55
     Dosage: 3 DOSAGE FORM, UNK
     Route: 048

REACTIONS (3)
  - Gingival abscess [Recovered/Resolved]
  - Osteonecrosis of jaw [Recovering/Resolving]
  - Periodontitis [Recovered/Resolved]

NARRATIVE: CASE EVENT DATE: 201404
